FAERS Safety Report 6344427-X (Version None)
Quarter: 2009Q3

REPORT INFORMATION
  Report Type: 
  Country: None (occurrence: None)
  Receive Date: 20090908
  Receipt Date: 20090831
  Transmission Date: 20100115
  Serious: Yes (Other)
  Sender: FDA-Public Use
  Company Number: PHHY2009BR37013

PATIENT
  Age: 42 Year
  Sex: Female
  Weight: 80 kg

DRUGS (1)
  1. TEGRETOL [Suspect]
     Indication: CONVULSION
     Dosage: 1 TABLET AT 6H00 AM AND 2 TABLETS AT 22H00
     Route: 048

REACTIONS (4)
  - CONVULSION [None]
  - FACE INJURY [None]
  - FALL [None]
  - TREMOR [None]
